FAERS Safety Report 10413371 (Version 1)
Quarter: 2014Q3

REPORT INFORMATION
  Report Type: Spontaneous
  Country: US (occurrence: US)
  Receive Date: 20140827
  Receipt Date: 20140827
  Transmission Date: 20150326
  Serious: Yes (Other)
  Sender: FDA-Public Use
  Company Number: US-GLAXOSMITHKLINE-A1085691A

PATIENT
  Age: 80 Year
  Sex: Male

DRUGS (11)
  1. ATENOLOL. [Concomitant]
     Active Substance: ATENOLOL
  2. NORCO [Concomitant]
     Active Substance: ACETAMINOPHEN\HYDROCODONE BITARTRATE
  3. MIRALAX [Concomitant]
     Active Substance: POLYETHYLENE GLYCOL 3350
  4. SERTRALINE [Concomitant]
     Active Substance: SERTRALINE HYDROCHLORIDE
  5. SIMVASTATIN. [Concomitant]
     Active Substance: SIMVASTATIN
  6. VOTRIENT [Suspect]
     Active Substance: PAZOPANIB HYDROCHLORIDE
     Indication: RENAL CANCER
     Dosage: 800MG PER DAY
     Route: 048
     Dates: start: 20140805, end: 20140810
  7. PROBIOTICS [Concomitant]
     Active Substance: PROBIOTICS NOS
  8. VITAMIN D [Concomitant]
     Active Substance: CHOLECALCIFEROL
  9. VESICARE [Concomitant]
     Active Substance: SOLIFENACIN SUCCINATE
  10. LEVOTHYROXINE [Concomitant]
     Active Substance: LEVOTHYROXINE
  11. WARFARIN [Concomitant]
     Active Substance: WARFARIN

REACTIONS (15)
  - Asthenia [Unknown]
  - Metastasis [Unknown]
  - Transient ischaemic attack [Unknown]
  - Hospice care [Unknown]
  - Decreased appetite [Unknown]
  - Metastases to chest wall [Unknown]
  - Confusional state [Unknown]
  - Joint dislocation [Unknown]
  - Speech disorder [Unknown]
  - Monoplegia [Unknown]
  - Disease progression [Unknown]
  - Rales [Unknown]
  - Personality change [Unknown]
  - Breath sounds abnormal [Unknown]
  - Balance disorder [Unknown]

NARRATIVE: CASE EVENT DATE: 20140807
